FAERS Safety Report 9353309 (Version 1)
Quarter: 2013Q2

REPORT INFORMATION
  Report Type: Spontaneous
  Country: US (occurrence: US)
  Receive Date: 20130618
  Receipt Date: 20130618
  Transmission Date: 20140414
  Serious: Yes (Other)
  Sender: FDA-Public Use
  Company Number: US-PFIZER INC-2013181170

PATIENT
  Sex: Male

DRUGS (3)
  1. VIAGRA [Suspect]
     Dosage: UNK
  2. VIAGRA [Suspect]
     Dosage: TOOK 8 PILLS AT A TIME
  3. VIAGRA [Suspect]
     Dosage: UNK

REACTIONS (2)
  - Incorrect dose administered [Unknown]
  - Erection increased [Unknown]
